FAERS Safety Report 13823100 (Version 1)
Quarter: 2017Q3

REPORT INFORMATION
  Report Type: Spontaneous
  Country: FR (occurrence: FR)
  Receive Date: 20170801
  Receipt Date: 20170801
  Transmission Date: 20171127
  Serious: Yes (Other)
  Sender: FDA-Public Use
  Company Number: FR-ASTRAZENECA-2017SE76955

PATIENT
  Age: 22750 Day
  Sex: Female

DRUGS (4)
  1. PYOSTACINE [Suspect]
     Active Substance: PRISTINAMYCIN
     Indication: ASTHMA
     Route: 048
     Dates: start: 20170505, end: 20170512
  2. PERNAZENE [Suspect]
     Active Substance: TYMAZOLINE
     Indication: ASTHMA
     Route: 045
     Dates: start: 20170505
  3. SYMBICORT [Suspect]
     Active Substance: BUDESONIDE\FORMOTEROL FUMARATE DIHYDRATE
     Indication: ASTHMA
     Dosage: 200/6 MCG PER DOSE
     Route: 055
     Dates: start: 20170505
  4. DOLIPRANE [Suspect]
     Active Substance: ACETAMINOPHEN
     Indication: ASTHMA
     Route: 048
     Dates: start: 20170505

REACTIONS (4)
  - Off label use [Recovered/Resolved]
  - Pharyngeal oedema [Recovered/Resolved]
  - Dyspnoea [Recovered/Resolved]
  - Urticaria [Recovered/Resolved]

NARRATIVE: CASE EVENT DATE: 20170505
